FAERS Safety Report 4314496-7 (Version None)
Quarter: 2004Q1

REPORT INFORMATION
  Report Type: 
  Country: None (occurrence: None)
  Receive Date: 20040308
  Receipt Date: 20040226
  Transmission Date: 20041129
  Serious: Yes (Death, Hospitalization)
  Sender: FDA-Public Use
  Company Number: 163-20785-03120526

PATIENT
  Age: 72 Year
  Sex: Female

DRUGS (1)
  1. THALOMID [Suspect]
     Indication: SYSTEMIC SCLEROSIS
     Dosage: 100 MG, QD,ORAL
     Route: 048
     Dates: start: 20030604

REACTIONS (3)
  - CALCIPHYLAXIS [None]
  - RENAL FAILURE [None]
  - SEPSIS [None]
